FAERS Safety Report 9214820 (Version 1)
Quarter: 2013Q2

REPORT INFORMATION
  Report Type: Spontaneous
  Country: US (occurrence: US)
  Receive Date: 20130405
  Receipt Date: 20130405
  Transmission Date: 20140414
  Serious: Yes (Hospitalization)
  Sender: FDA-Public Use
  Company Number: US-MERCK-1304USA001118

PATIENT
  Sex: Male

DRUGS (3)
  1. JANUVIA [Suspect]
     Indication: DIABETES MELLITUS
     Dosage: 100 MG, QD
     Route: 048
     Dates: start: 201301
  2. METFORMIN [Concomitant]
  3. GLYBURIDE [Concomitant]

REACTIONS (1)
  - Pancreatitis [Unknown]
